FAERS Safety Report 25182855 (Version 5)
Quarter: 2025Q2

REPORT INFORMATION
  Report Type: Spontaneous
  Country: US (occurrence: US)
  Receive Date: 20250410
  Receipt Date: 20250523
  Transmission Date: 20250716
  Serious: No
  Sender: ROCHE
  Company Number: US-ROCHE-10000246902

PATIENT
  Sex: Female

DRUGS (1)
  1. XOLAIR [Suspect]
     Active Substance: OMALIZUMAB
     Indication: Product used for unknown indication
     Route: 058

REACTIONS (8)
  - Product dose omission issue [Unknown]
  - Pain [Recovered/Resolved]
  - Accidental exposure to product [Unknown]
  - Product quality issue [Unknown]
  - Aphonia [Unknown]
  - Malaise [Unknown]
  - Illness [Unknown]
  - Device issue [Unknown]

NARRATIVE: CASE EVENT DATE: 20250329
